FAERS Safety Report 6530954-9 (Version None)
Quarter: 2010Q1

REPORT INFORMATION
  Report Type: 
  Country: None (occurrence: None)
  Receive Date: 20100108
  Receipt Date: 20090714
  Transmission Date: 20100710
  Serious: No
  Sender: FDA-Public Use
  Company Number: A0796871A

PATIENT
  Age: 69 Year
  Sex: Female

DRUGS (16)
  1. LOVAZA [Suspect]
     Indication: DRUG USE FOR UNKNOWN INDICATION
     Dosage: 2CAP PER DAY
     Route: 048
     Dates: start: 20050101
  2. ACIPHEX [Concomitant]
  3. METOCLOPRAMIDE [Concomitant]
  4. GLYBURIDE [Concomitant]
  5. SYNTHROID [Concomitant]
  6. ELAVIL [Concomitant]
  7. ZETIA [Concomitant]
  8. TOPROL-XL [Concomitant]
  9. NORVASC [Concomitant]
  10. SINGULAIR [Concomitant]
  11. PRAVASTATIN [Concomitant]
  12. HYZAAR [Concomitant]
  13. B COMPLEX ELX [Concomitant]
  14. IRON [Concomitant]
  15. STOOL SOFTENER [Concomitant]
  16. LANTUS [Concomitant]

REACTIONS (2)
  - ANAL PRURITUS [None]
  - PRURITUS [None]
